FAERS Safety Report 12880210 (Version 1)
Quarter: 2016Q4

REPORT INFORMATION
  Report Type: Spontaneous
  Country: US (occurrence: US)
  Receive Date: 20161025
  Receipt Date: 20161025
  Transmission Date: 20170207
  Serious: Yes (Hospitalization)
  Sender: FDA-Public Use
  Company Number: PHEH2016US027071

PATIENT
  Sex: Female

DRUGS (1)
  1. RECLAST [Suspect]
     Active Substance: ZOLEDRONIC ACID
     Indication: PRODUCT USED FOR UNKNOWN INDICATION
     Dosage: UNK
     Route: 041
     Dates: start: 20160609

REACTIONS (10)
  - Liver disorder [Unknown]
  - Dehydration [Unknown]
  - Weight decreased [Unknown]
  - Malaise [Unknown]
  - Malnutrition [Unknown]
  - Chromaturia [Unknown]
  - Vomiting [Unknown]
  - Renal disorder [Unknown]
  - General physical health deterioration [Unknown]
  - Chills [Unknown]

NARRATIVE: CASE EVENT DATE: 20160609
